FAERS Safety Report 8329385-0 (Version None)
Quarter: 2012Q2

REPORT INFORMATION
  Report Type: 
  Country: None (occurrence: None)
  Receive Date: 20120502
  Receipt Date: 20020204
  Transmission Date: 20120825
  Serious: Yes (Hospitalization)
  Sender: FDA-Public Use
  Company Number: FR-ROCHE-306375

PATIENT
  Age: 33 Year
  Sex: Female

DRUGS (16)
  1. METHYLPREDNISOLONE [Concomitant]
     Dates: start: 20010816, end: 20011012
  2. CYCLOPHOSPHAMIDE [Concomitant]
     Dates: start: 20010918, end: 20011003
  3. LUTENYL [Concomitant]
  4. ZOLPIDEM TARTRATE [Concomitant]
  5. CYTARABINE [Concomitant]
     Dosage: FOUR CYCLES.
     Dates: start: 20010921, end: 20011014
  6. ALLOPURINOL [Concomitant]
     Dates: start: 20011005, end: 20011029
  7. VISCERALGINE FORTE [Suspect]
     Indication: PRODUCT USED FOR UNKNOWN INDICATION
     Route: 048
     Dates: start: 20011019, end: 20011028
  8. IDARUBICIN HCL [Concomitant]
     Dates: start: 20010814, end: 20010918
  9. OFLOXACIN [Suspect]
     Indication: PRODUCT USED FOR UNKNOWN INDICATION
     Route: 042
     Dates: start: 20011019, end: 20011104
  10. VINCRISTINE [Concomitant]
     Dates: start: 20010814, end: 20010918
  11. KIDROLASE [Concomitant]
     Dates: start: 20010814, end: 20010918
  12. METHOTREXATE [Concomitant]
     Dates: start: 20010816, end: 20011012
  13. PURINETHOL [Concomitant]
  14. PREDNISOLONE SODIUM [Concomitant]
  15. ROCEPHIN [Suspect]
     Indication: PRODUCT USED FOR UNKNOWN INDICATION
     Route: 042
     Dates: start: 20011019, end: 20011104
  16. MYCOSTATIN [Suspect]
     Indication: PRODUCT USED FOR UNKNOWN INDICATION
     Route: 048
     Dates: start: 20011019, end: 20011104

REACTIONS (3)
  - FEBRILE BONE MARROW APLASIA [None]
  - GENERAL PHYSICAL HEALTH DETERIORATION [None]
  - PYREXIA [None]
